FAERS Safety Report 6151226-0 (Version None)
Quarter: 2009Q2

REPORT INFORMATION
  Report Type: 
  Country: None (occurrence: None)
  Receive Date: 20090410
  Receipt Date: 20090408
  Transmission Date: 20091009
  Serious: Yes (Disabling)
  Sender: FDA-Public Use
  Company Number: ZA-BRISTOL-MYERS SQUIBB COMPANY-14579999

PATIENT
  Age: 42 Year
  Sex: Female

DRUGS (4)
  1. MOLIPAXIN TABS [Suspect]
     Indication: DEPRESSION
     Route: 048
     Dates: end: 20050101
  2. LUVOX [Concomitant]
     Indication: DEPRESSION
     Dosage: DRUG STOPPED.
     Dates: end: 20050101
  3. RIVOTRIL [Concomitant]
     Indication: DEPRESSION
     Dosage: DRUG STOPPED.
     Dates: end: 20050101
  4. XANOR [Concomitant]
     Dosage: XANOR SR.

REACTIONS (2)
  - ALOPECIA [None]
  - PHOTOSENSITIVITY REACTION [None]
